FAERS Safety Report 6013250-8 (Version None)
Quarter: 2008Q4

REPORT INFORMATION
  Report Type: 
  Country: None (occurrence: None)
  Receive Date: 20081218
  Receipt Date: 20081218
  Transmission Date: 20090506
  Serious: Yes (Life-Threatening)
  Sender: FDA-Public Use
  Company Number: None

PATIENT
  Age: 43 Year
  Sex: Male
  Weight: 104.3273 kg

DRUGS (2)
  1. NEXIUM [Suspect]
     Indication: DYSPEPSIA
     Dosage: 40MG 2 X DAILY PO
     Route: 048
     Dates: start: 20080901, end: 20081212
  2. NEXIUM [Suspect]
     Indication: PROPHYLAXIS
     Dosage: 40MG 2 X DAILY PO
     Route: 048
     Dates: start: 20080901, end: 20081212

REACTIONS (5)
  - ANXIETY [None]
  - CARDIAC FLUTTER [None]
  - HEART RATE INCREASED [None]
  - HEART RATE IRREGULAR [None]
  - MIDDLE INSOMNIA [None]
